FAERS Safety Report 21713209 (Version 1)
Quarter: 2022Q4

REPORT INFORMATION
  Report Type: Spontaneous
  Country: AT (occurrence: AT)
  Receive Date: 20221212
  Receipt Date: 20221212
  Transmission Date: 20230113
  Serious: Yes (Other)
  Sender: FDA-Public Use
  Company Number: AT-GLAXOSMITHKLINE-AT2022EME184009

PATIENT

DRUGS (2)
  1. BLENREP [Suspect]
     Active Substance: BELANTAMAB MAFODOTIN-BLMF
     Indication: Product used for unknown indication
     Dosage: UNK
     Dates: start: 202004
  2. GENTEAL MILD [Suspect]
     Active Substance: HYPROMELLOSE 2910 (4000 MPA.S)
     Indication: Ophthalmological examination
     Dosage: UNK UNK, QD (AT LEAST 6-8 GTT)

REACTIONS (7)
  - Renal impairment [Unknown]
  - Nephropathy toxic [Unknown]
  - Nephrotic syndrome [Unknown]
  - Cerebral haemorrhage [Unknown]
  - Haematotoxicity [Unknown]
  - Anaemia [Unknown]
  - Light chain analysis increased [Unknown]

NARRATIVE: CASE EVENT DATE: 20210701
